FAERS Safety Report 23880046 (Version 1)
Quarter: 2024Q2

REPORT INFORMATION
  Report Type: Spontaneous
  Country: CN (occurrence: CN)
  Receive Date: 20240521
  Receipt Date: 20240521
  Transmission Date: 20240716
  Serious: Yes (Hospitalization)
  Sender: FDA-Public Use
  Company Number: CN-SHANGHAI JUNSHI BIOSCIENCES CO., LTD.-CN2024010053

PATIENT

DRUGS (4)
  1. TORIPALIMAB [Suspect]
     Active Substance: TORIPALIMAB
     Indication: Colon cancer
     Dosage: 240 MG
     Route: 041
     Dates: start: 20240331, end: 20240331
  2. CAPECITABINE [Suspect]
     Active Substance: CAPECITABINE
     Indication: Colon cancer
     Dosage: 1.5 G (D1-D14), BID
     Route: 048
     Dates: start: 20240402, end: 20240415
  3. OXALIPLATIN [Suspect]
     Active Substance: OXALIPLATIN
     Indication: Colon cancer
     Dosage: 200 MG
     Route: 041
     Dates: start: 20240401, end: 20240401
  4. SURUFATINIB [Suspect]
     Active Substance: SURUFATINIB
     Indication: Colon cancer
     Dosage: 300 MG, QD
     Route: 048
     Dates: start: 20240402, end: 20240501

REACTIONS (2)
  - Myelosuppression [Recovering/Resolving]
  - Off label use [Unknown]

NARRATIVE: CASE EVENT DATE: 20240331
